FAERS Safety Report 16096333 (Version 1)
Quarter: 2019Q1

REPORT INFORMATION
  Report Type: Report from Study
  Country: US (occurrence: US)
  Receive Date: 20190320
  Receipt Date: 20190320
  Transmission Date: 20190418
  Serious: Yes (Other)
  Sender: FDA-Public Use
  Company Number: US-UCBSA-2018008673

PATIENT
  Sex: Female

DRUGS (1)
  1. LEVETIRACETAM. [Suspect]
     Active Substance: LEVETIRACETAM
     Indication: FOCAL DYSCOGNITIVE SEIZURES
     Dosage: UNK

REACTIONS (7)
  - Generalised tonic-clonic seizure [Unknown]
  - Amnesia [Unknown]
  - Sleep disorder [Unknown]
  - Headache [Unknown]
  - Deja vu [Unknown]
  - Seizure [Unknown]
  - Mood swings [Unknown]
